FAERS Safety Report 10853454 (Version 2)
Quarter: 2015Q2

REPORT INFORMATION
  Report Type: Spontaneous
  Country: US (occurrence: US)
  Receive Date: 20150223
  Receipt Date: 20150423
  Transmission Date: 20150821
  Serious: No
  Sender: FDA-Public Use
  Company Number: US-BIOGENIDEC-2015BI012517

PATIENT
  Age: 56 Year
  Sex: Male

DRUGS (1)
  1. TECFIDERA [Suspect]
     Active Substance: DIMETHYL FUMARATE
     Indication: MULTIPLE SCLEROSIS
     Route: 048
     Dates: start: 20141002

REACTIONS (9)
  - Muscular weakness [Recovered/Resolved]
  - Back pain [Not Recovered/Not Resolved]
  - Spinal fracture [Not Recovered/Not Resolved]
  - Loss of control of legs [Recovered/Resolved]
  - Pain [Recovered/Resolved]
  - Cold sweat [Recovered/Resolved]
  - Multiple sclerosis relapse [Not Recovered/Not Resolved]
  - Fall [Recovered/Resolved]
  - Asthenia [Recovered/Resolved]

NARRATIVE: CASE EVENT DATE: 201412
